FAERS Safety Report 5989995-2 (Version None)
Quarter: 2008Q4

REPORT INFORMATION
  Report Type: 
  Country: None (occurrence: None)
  Receive Date: 20081209
  Receipt Date: 20081209
  Transmission Date: 20090506
  Serious: Yes (Life-Threatening)
  Sender: FDA-Public Use
  Company Number: None

PATIENT
  Age: 14 Year
  Sex: Male
  Weight: 81.6475 kg

DRUGS (2)
  1. GEODON [Suspect]
     Indication: AFFECTIVE DISORDER
     Dosage: 40MG 1X DAY PO
     Route: 048
     Dates: start: 20060929, end: 20081208
  2. GEODON [Suspect]
     Indication: POSTPARTUM DEPRESSION
     Dosage: 20MG 1X DAY PO
     Route: 048

REACTIONS (2)
  - DYSTONIA [None]
  - EYE ROLLING [None]
